FAERS Safety Report 8231076-1 (Version None)
Quarter: 2012Q1

REPORT INFORMATION
  Report Type: 
  Country: None (occurrence: None)
  Receive Date: 20120323
  Receipt Date: 20120316
  Transmission Date: 20120608
  Serious: Yes (Hospitalization)
  Sender: FDA-Public Use
  Company Number: US-BAYER-2012-027012

PATIENT
  Age: 26 Year
  Sex: Female

DRUGS (4)
  1. SPIRONOLACTONE [Concomitant]
     Route: 048
  2. YASMIN [Suspect]
     Dosage: UNK
  3. METFORMIN HCL [Concomitant]
     Dosage: 500 MG, UNK
     Route: 048
     Dates: start: 20111024
  4. YAZ [Suspect]
     Dosage: UNK

REACTIONS (1)
  - PULMONARY EMBOLISM [None]
